FAERS Safety Report 25202620 (Version 2)
Quarter: 2025Q2

REPORT INFORMATION
  Report Type: Spontaneous
  Country: US (occurrence: US)
  Receive Date: 20250416
  Receipt Date: 20250423
  Transmission Date: 20250717
  Serious: Yes (Other)
  Sender: MYLAN
  Company Number: US-MYLANLABS-2025M1030849

PATIENT
  Sex: Male
  Weight: 68.04 kg

DRUGS (8)
  1. NORVASC [Interacting]
     Active Substance: AMLODIPINE BESYLATE
     Indication: Hypertension
  2. NORVASC [Interacting]
     Active Substance: AMLODIPINE BESYLATE
     Route: 065
  3. NORVASC [Interacting]
     Active Substance: AMLODIPINE BESYLATE
     Route: 065
  4. NORVASC [Interacting]
     Active Substance: AMLODIPINE BESYLATE
  5. CERDELGA [Interacting]
     Active Substance: ELIGLUSTAT
     Indication: Gaucher^s disease
     Dosage: 84 MILLIGRAM, QD (ONCE A DAY)
     Dates: start: 20240110
  6. CERDELGA [Interacting]
     Active Substance: ELIGLUSTAT
     Dosage: 84 MILLIGRAM, QD (ONCE A DAY)
     Route: 048
     Dates: start: 20240110
  7. CERDELGA [Interacting]
     Active Substance: ELIGLUSTAT
     Dosage: 84 MILLIGRAM, QD (ONCE A DAY)
     Route: 048
     Dates: start: 20240110
  8. CERDELGA [Interacting]
     Active Substance: ELIGLUSTAT
     Dosage: 84 MILLIGRAM, QD (ONCE A DAY)
     Dates: start: 20240110

REACTIONS (3)
  - Electrocardiogram QT prolonged [Unknown]
  - Drug interaction [Unknown]
  - Weight increased [Unknown]
